FAERS Safety Report 6679544-8 (Version None)
Quarter: 2010Q2

REPORT INFORMATION
  Report Type: 
  Country: None (occurrence: None)
  Receive Date: 20100413
  Receipt Date: 20100406
  Transmission Date: 20101027
  Serious: Yes (Other)
  Sender: FDA-Public Use
  Company Number: PHHY2010CA07391

PATIENT
  Sex: Male

DRUGS (1)
  1. SANDOSTATIN LAR [Suspect]
     Indication: ACROMEGALY
     Dosage: 20 MG EVERY 4 WEEKS
     Route: 030
     Dates: start: 20040105

REACTIONS (4)
  - ABSCESS DRAINAGE [None]
  - SIALOADENITIS [None]
  - SUBCUTANEOUS ABSCESS [None]
  - TOOTHACHE [None]
